FAERS Safety Report 5480893-X (Version None)
Quarter: 2007Q4

REPORT INFORMATION
  Report Type: 
  Country: None (occurrence: None)
  Receive Date: 20071004
  Receipt Date: 20070919
  Transmission Date: 20080405
  Serious: Yes (Life-Threatening)
  Sender: FDA-Public Use
  Company Number: DSJ-2007-06101

PATIENT
  Age: 35 Year
  Sex: Male
  Weight: 87 kg

DRUGS (5)
  1. OLMESARTAN MEDOXOMIL [Suspect]
     Indication: SELF MUTILATION
     Dosage: 74T (1480 MG, 1 IN 1 D), PER ORAL
     Route: 048
     Dates: start: 20070818, end: 20070818
  2. ARTIST (CARVEDILOL) (TABLET) (CARVEDILOL) [Suspect]
     Indication: SELF MUTILATION
     Dosage: 32T (320 MG, 1 IN 1 D), PER ORAL
     Route: 048
     Dates: start: 20070818, end: 20070818
  3. ADALAT CR (NIFEDIPINE) (TABLET) (NIFEDIPINE) [Suspect]
     Indication: SELF MUTILATION
     Dosage: 48T (1920 MG, 1 IN 1 D), PER ORAL
     Route: 048
     Dates: start: 20070818, end: 20070818
  4. DIOVAN [Suspect]
     Indication: SELF MUTILATION
     Dosage: 8T (320 MG, 1 IN 1 D), PER ORAL
     Route: 048
     Dates: start: 20070818, end: 20070818
  5. ALLOPURINOL [Suspect]
     Indication: SELF MUTILATION
     Dosage: 32T (3200 MG, 1 IN 1 D), PER ORAL
     Route: 048
     Dates: start: 20070818, end: 20070818

REACTIONS (5)
  - MOBILITY DECREASED [None]
  - OVERDOSE [None]
  - SHOCK [None]
  - SUICIDE ATTEMPT [None]
  - VOMITING [None]
